FAERS Safety Report 5086773-6 (Version None)
Quarter: 2006Q3

REPORT INFORMATION
  Report Type: 
  Country: None (occurrence: None)
  Receive Date: 20060818
  Receipt Date: 20060804
  Transmission Date: 20061208
  Serious: Yes (Death)
  Sender: FDA-Public Use
  Company Number: 2006S1005718

PATIENT
  Age: 13 Year
  Sex: Male

DRUGS (4)
  1. ADDERALL XR 10 [Suspect]
     Indication: ATTENTION DEFICIT/HYPERACTIVITY DISORDER
     Dosage: 20 MG BID ORAL
     Route: 048
     Dates: start: 20040101, end: 20060301
  2. CLONIDINE HCL [Suspect]
     Indication: INSOMNIA
     Dosage: 0.6 MG HS ORAL
     Route: 048
     Dates: start: 20040101, end: 20060325
  3. PROZAC [Suspect]
     Indication: DEPRESSION
     Dosage: 20 MG QD ORAL
     Route: 048
     Dates: start: 20040101, end: 20060301
  4. AMOXICILLIN [Concomitant]

REACTIONS (5)
  - MALAISE [None]
  - MYOCARDITIS BACTERIAL [None]
  - PHARYNGITIS STREPTOCOCCAL [None]
  - STREPTOCOCCAL INFECTION [None]
  - SUDDEN DEATH [None]
